FAERS Safety Report 5705693-4 (Version None)
Quarter: 2008Q2

REPORT INFORMATION
  Report Type: 
  Country: None (occurrence: None)
  Receive Date: 20080415
  Receipt Date: 20080408
  Transmission Date: 20081010
  Serious: Yes (Other)
  Sender: FDA-Public Use
  Company Number: B0515742A

PATIENT
  Sex: Female

DRUGS (1)
  1. NIQUITIN CQ 2MG LOZENGE [Suspect]
     Route: 002

REACTIONS (8)
  - ABDOMINAL PAIN UPPER [None]
  - CONTUSION [None]
  - DIZZINESS [None]
  - FLATULENCE [None]
  - NAUSEA [None]
  - PHARMACEUTICAL PRODUCT COMPLAINT [None]
  - RASH GENERALISED [None]
  - SYNCOPE [None]
